FAERS Safety Report 21147692 (Version 3)
Quarter: 2022Q3

REPORT INFORMATION
  Report Type: Spontaneous
  Country: JP (occurrence: JP)
  Receive Date: 20220729
  Receipt Date: 20220920
  Transmission Date: 20221027
  Serious: Yes (Death, Hospitalization, Other)
  Sender: FDA-Public Use
  Company Number: JP-ASTELLAS-2022JP011427

PATIENT
  Age: 79 Year
  Sex: Female

DRUGS (1)
  1. PADCEV [Suspect]
     Active Substance: ENFORTUMAB VEDOTIN-EJFV
     Indication: Transitional cell carcinoma
     Dosage: 1.25 MG/KG, ONCE WEEKLY, 3 CONSECUTIVE WEEKS OF ADMINISTRATION AND INTERRUPTION FOR THE 4TH WEEK
     Route: 041
     Dates: start: 20211223, end: 20220623

REACTIONS (4)
  - Hepatic haemorrhage [Recovering/Resolving]
  - Malignant neoplasm progression [Unknown]
  - COVID-19 [Recovered/Resolved]
  - Death [Fatal]

NARRATIVE: CASE EVENT DATE: 20220707
